FAERS Safety Report 14689992 (Version 7)
Quarter: 2018Q2

REPORT INFORMATION
  Report Type: Spontaneous
  Country: ES (occurrence: ES)
  Receive Date: 20180328
  Receipt Date: 20180605
  Transmission Date: 20180711
  Serious: Yes (Other)
  Sender: FDA-Public Use
  Company Number: ES-OTSUKA-2018_007433

PATIENT
  Age: 23 Year
  Sex: Male

DRUGS (20)
  1. DOXORUBICIN HCL [Suspect]
     Active Substance: DOXORUBICIN HYDROCHLORIDE
     Indication: ACUTE LYMPHOCYTIC LEUKAEMIA RECURRENT
     Dosage: UNK, CYCLICAL, FIRST CYCLE
     Route: 065
     Dates: start: 20140415
  2. DOXORUBICIN HCL [Suspect]
     Active Substance: DOXORUBICIN HYDROCHLORIDE
     Dosage: UNK, CYCLICAL, SECOND CYCLE
     Route: 065
     Dates: start: 2014
  3. DEXAMETHASONE. [Suspect]
     Active Substance: DEXAMETHASONE
     Indication: ACUTE LYMPHOCYTIC LEUKAEMIA RECURRENT
     Dosage: SECOND CYCLE ; CYCLICAL
     Route: 065
     Dates: start: 2014
  4. CYTARABINE. [Suspect]
     Active Substance: CYTARABINE
     Indication: ACUTE LYMPHOCYTIC LEUKAEMIA RECURRENT
     Dosage: REGIMEN #1, FIRST CYCLE ; CYCLICAL; UNK
     Route: 065
     Dates: start: 20140415
  5. METHOTREXATE SODIUM. [Suspect]
     Active Substance: METHOTREXATE SODIUM
     Dosage: SECOND CYCLE ; CYCLICAL
     Route: 065
     Dates: start: 2014
  6. VINCRISTINE SULFATE. [Suspect]
     Active Substance: VINCRISTINE SULFATE
     Dosage: SECOND CYCLE;CYCLICAL
     Route: 065
     Dates: start: 2014
  7. GENOXAL [Suspect]
     Active Substance: CYCLOPHOSPHAMIDE
     Dosage: SECOND CYCLE ; CYCLICAL
     Route: 065
     Dates: start: 2014
  8. ICLUSIG [Suspect]
     Active Substance: PONATINIB
     Indication: PRODUCT USED FOR UNKNOWN INDICATION
     Dosage: REGIMEN #1, FIRST CYCLE; 5 MG, QD (1/DAY)
     Route: 048
     Dates: start: 20140415
  9. RITUXIMAB. [Suspect]
     Active Substance: RITUXIMAB
     Indication: PRODUCT USED FOR UNKNOWN INDICATION
     Dosage: REGIMEN #1, FIRST CYCLE ;CYCLICAL; UNK
     Route: 065
  10. GENOXAL [Suspect]
     Active Substance: CYCLOPHOSPHAMIDE
     Indication: ACUTE LYMPHOCYTIC LEUKAEMIA RECURRENT
     Dosage: REGIMEN #1, FIRST CYCLE ; CYCLICAL
     Route: 065
     Dates: start: 20140415
  11. ICLUSIG [Suspect]
     Active Substance: PONATINIB
     Dosage: SECOND CYCLE; UNK
     Route: 065
     Dates: start: 2014
  12. BUSULFAN. [Suspect]
     Active Substance: BUSULFAN
     Indication: ACUTE LYMPHOCYTIC LEUKAEMIA RECURRENT
     Dosage: REGIMEN 1, CYCLICAL
     Route: 065
     Dates: start: 20140928
  13. ICLUSIG [Suspect]
     Active Substance: PONATINIB
     Dosage: UNK
     Route: 065
  14. METHOTREXATE SODIUM. [Suspect]
     Active Substance: METHOTREXATE SODIUM
     Indication: ACUTE LYMPHOCYTIC LEUKAEMIA RECURRENT
     Dosage: REGIMEN #1, FIRST CYCLE ; CYCLICAL; UNK
     Route: 065
     Dates: start: 20140415
  15. VINCRISTINE SULFATE. [Suspect]
     Active Substance: VINCRISTINE SULFATE
     Indication: ACUTE LYMPHOCYTIC LEUKAEMIA RECURRENT
     Dosage: UNK, FIRST CYCLE, CYCLICAL
     Route: 065
     Dates: start: 20140415
  16. VINCRISTINE SULFATE. [Suspect]
     Active Substance: VINCRISTINE SULFATE
     Dosage: UNK, SECOND CYCLE
     Route: 065
     Dates: start: 20140415
  17. CYTARABINE. [Suspect]
     Active Substance: CYTARABINE
     Dosage: SECOND CYCLE ; CYCLICAL
     Route: 065
     Dates: start: 2014
  18. DEXAMETHASONE. [Suspect]
     Active Substance: DEXAMETHASONE
     Indication: ACUTE LYMPHOCYTIC LEUKAEMIA
     Dosage: REGIMEN #1, FIRST CYCLE ; CYCLICAL; UNK
     Route: 065
     Dates: start: 20140415
  19. THIOTEPA. [Suspect]
     Active Substance: THIOTEPA
     Indication: ACUTE LYMPHOCYTIC LEUKAEMIA RECURRENT
     Dosage: REGIMEN #1, FIRST CYCLE ;CYCLICAL; (4 CYCLES)
     Route: 065
     Dates: start: 20140928
  20. FLUDARABINE [Suspect]
     Active Substance: FLUDARABINE PHOSPHATE
     Indication: ACUTE LYMPHOCYTIC LEUKAEMIA RECURRENT
     Dosage: REGIMEN #1, FIRST CYCLE ; CYCLICAL; UNK
     Route: 065
     Dates: start: 20140928

REACTIONS (3)
  - Post transplant lymphoproliferative disorder [Unknown]
  - Viral haemorrhagic cystitis [Unknown]
  - Cytomegalovirus infection [Unknown]

NARRATIVE: CASE EVENT DATE: 20141015
